FAERS Safety Report 25715152 (Version 1)
Quarter: 2025Q3

REPORT INFORMATION
  Report Type: Spontaneous
  Country: EU (occurrence: EU)
  Receive Date: 20250822
  Receipt Date: 20250822
  Transmission Date: 20251020
  Serious: Yes (Death, Other)
  Sender: AUROBINDO
  Company Number: EU-BoehringerIngelheim-2025-BI-085326

PATIENT
  Age: 72 Year
  Sex: Male

DRUGS (1)
  1. NINTEDANIB [Suspect]
     Active Substance: NINTEDANIB
     Indication: Idiopathic pulmonary fibrosis
     Route: 065

REACTIONS (5)
  - Death [Fatal]
  - Klebsiella bacteraemia [Unknown]
  - Respiratory failure [Unknown]
  - Clostridium bacteraemia [Unknown]
  - Cholecystitis [Unknown]
